FAERS Safety Report 24766841 (Version 9)
Quarter: 2025Q3

REPORT INFORMATION
  Report Type: Report from Study
  Country: EU (occurrence: EU)
  Receive Date: 20241223
  Receipt Date: 20250925
  Transmission Date: 20251021
  Serious: Yes (Hospitalization)
  Sender: MYLAN
  Company Number: EU-002147023-NVSC2024FR224751

PATIENT
  Age: 44 Year
  Sex: Female
  Weight: 80 kg

DRUGS (12)
  1. VENLAFAXINE [Suspect]
     Active Substance: VENLAFAXINE HYDROCHLORIDE
     Indication: Depression
     Dosage: 75 MILLIGRAM, TID, (75 MG X3) QD (DAILY) (CAPSULE)
     Dates: start: 20240929, end: 20241129
  2. VENLAFAXINE [Suspect]
     Active Substance: VENLAFAXINE HYDROCHLORIDE
     Dosage: 75 MILLIGRAM, TID, (75 MG X3) QD (DAILY) (CAPSULE)
     Route: 048
     Dates: start: 20240929, end: 20241129
  3. VENLAFAXINE [Suspect]
     Active Substance: VENLAFAXINE HYDROCHLORIDE
     Dosage: 75 MILLIGRAM, TID, (75 MG X3) QD (DAILY) (CAPSULE)
     Route: 048
     Dates: start: 20240929, end: 20241129
  4. VENLAFAXINE [Suspect]
     Active Substance: VENLAFAXINE HYDROCHLORIDE
     Dosage: 75 MILLIGRAM, TID, (75 MG X3) QD (DAILY) (CAPSULE)
     Dates: start: 20240929, end: 20241129
  5. COSENTYX [Suspect]
     Active Substance: SECUKINUMAB
     Indication: Hidradenitis
     Dosage: 300 MILLIGRAM, Q28D
     Dates: start: 20240821
  6. COSENTYX [Suspect]
     Active Substance: SECUKINUMAB
     Dosage: 300 MILLIGRAM, Q28D
     Route: 058
     Dates: start: 20240821
  7. COSENTYX [Suspect]
     Active Substance: SECUKINUMAB
     Dosage: 300 MILLIGRAM, Q28D
     Route: 058
     Dates: start: 20240821
  8. COSENTYX [Suspect]
     Active Substance: SECUKINUMAB
     Dosage: 300 MILLIGRAM, Q28D
     Dates: start: 20240821
  9. PAROXETINE [Concomitant]
     Active Substance: PAROXETINE
     Indication: Depression
     Dates: start: 20230615, end: 20241029
  10. PAROXETINE [Concomitant]
     Active Substance: PAROXETINE
     Route: 048
     Dates: start: 20230615, end: 20241029
  11. PAROXETINE [Concomitant]
     Active Substance: PAROXETINE
     Route: 048
     Dates: start: 20230615, end: 20241029
  12. PAROXETINE [Concomitant]
     Active Substance: PAROXETINE
     Dates: start: 20230615, end: 20241029

REACTIONS (8)
  - Anxiety disorder [Recovering/Resolving]
  - Depression [Recovering/Resolving]
  - Anxiety [Recovering/Resolving]
  - Mania [Recovering/Resolving]
  - Myalgia [Recovered/Resolved]
  - Urticaria [Recovered/Resolved]
  - Fatigue [Recovering/Resolving]
  - Off label use [Unknown]

NARRATIVE: CASE EVENT DATE: 20241001
